FAERS Safety Report 9234105 (Version 3)
Quarter: 2015Q1

REPORT INFORMATION
  Report Type: Report from Study
  Country: CO (occurrence: CO)
  Receive Date: 20130416
  Receipt Date: 20150204
  Transmission Date: 20150721
  Serious: Yes (Death, Other)
  Sender: FDA-Public Use
  Company Number: CO-ROCHE-1214463

PATIENT
  Sex: Male
  Weight: 52 kg

DRUGS (8)
  1. LUCENTIS [Suspect]
     Active Substance: RANIBIZUMAB
     Route: 050
     Dates: start: 20130225, end: 20130225
  2. INSULIN [Concomitant]
     Active Substance: INSULIN NOS
  3. ATORVASTATIN [Concomitant]
     Active Substance: ATORVASTATIN
  4. LUCENTIS [Suspect]
     Active Substance: RANIBIZUMAB
     Indication: DIABETIC EYE DISEASE
     Route: 050
     Dates: start: 20130125
  5. LANTUS [Concomitant]
     Active Substance: INSULIN GLARGINE
  6. LOSARTAN [Concomitant]
     Active Substance: LOSARTAN
  7. GLIBENCLAMIDE [Concomitant]
     Active Substance: GLYBURIDE
     Route: 065
  8. METFORMIN [Concomitant]
     Active Substance: METFORMIN HYDROCHLORIDE
     Route: 065

REACTIONS (5)
  - Off label use [Unknown]
  - Eye haemorrhage [Unknown]
  - Vitreous haemorrhage [Recovered/Resolved]
  - Death [Fatal]
  - Blindness [Unknown]
